FAERS Safety Report 6420701-3 (Version None)
Quarter: 2009Q4

REPORT INFORMATION
  Report Type: 
  Country: None (occurrence: None)
  Receive Date: 20091029
  Receipt Date: 20091023
  Transmission Date: 20100525
  Serious: Yes (Other)
  Sender: FDA-Public Use
  Company Number: US-JNJCH-2009028117

PATIENT
  Age: 74 Year
  Sex: Female
  Weight: 63.5 kg

DRUGS (6)
  1. ZYRTEC [Suspect]
     Indication: SINUS CONGESTION
     Route: 048
  2. MOTRIN [Concomitant]
     Indication: SINUS HEADACHE
     Dosage: TEXT:1-2 IN DAY
     Route: 065
  3. VITAMIN B COMPLEX CAP [Concomitant]
     Indication: VITAMIN SUPPLEMENTATION
     Dosage: TEXT:1 PILL A DAY
     Route: 048
  4. VITAMIN E [Concomitant]
     Indication: VITAMIN SUPPLEMENTATION
     Dosage: TEXT:400 MG
     Route: 065
  5. VITAMIN B-12 [Concomitant]
     Indication: VITAMIN SUPPLEMENTATION
     Dosage: TEXT:100 MG A DAY
     Route: 065
  6. GLUCOSAMINE [Concomitant]
     Indication: DRUG USE FOR UNKNOWN INDICATION
     Dosage: TEXT:500 MG A DAY
     Route: 065

REACTIONS (7)
  - BACK PAIN [None]
  - BLADDER DISCOMFORT [None]
  - HEADACHE [None]
  - INSOMNIA [None]
  - POLLAKIURIA [None]
  - WRONG DRUG ADMINISTERED [None]
  - WRONG TECHNIQUE IN DRUG USAGE PROCESS [None]
